FAERS Safety Report 5748258-0 (Version None)
Quarter: 2008Q2

REPORT INFORMATION
  Report Type: 
  Country: None (occurrence: None)
  Receive Date: 20080523
  Receipt Date: 20080514
  Transmission Date: 20081010
  Serious: Yes (Other)
  Sender: FDA-Public Use
  Company Number: GB-PFIZER INC-2008037630

PATIENT
  Sex: Male
  Weight: 219 kg

DRUGS (6)
  1. LIPITOR [Suspect]
     Indication: MYOCARDIAL INFARCTION
  2. WARFARIN SODIUM [Concomitant]
     Route: 048
  3. ALL OTHER THERAPEUTIC PRODUCTS [Concomitant]
  4. CARDICOR [Concomitant]
     Route: 048
  5. LISINOPRIL [Concomitant]
     Route: 048
  6. HYPOVASE [Concomitant]
     Route: 048

REACTIONS (7)
  - BACK PAIN [None]
  - BLOOD CREATININE INCREASED [None]
  - DEEP VEIN THROMBOSIS [None]
  - MUSCLE ATROPHY [None]
  - MUSCULAR WEAKNESS [None]
  - MYALGIA [None]
  - PULMONARY EMBOLISM [None]
